FAERS Safety Report 5837052-8 (Version None)
Quarter: 2008Q3

REPORT INFORMATION
  Report Type: 
  Country: None (occurrence: None)
  Receive Date: 20080807
  Receipt Date: 20080630
  Transmission Date: 20090109
  Serious: Yes (Other)
  Sender: FDA-Public Use
  Company Number: GB-GILEAD-2008-0017184

PATIENT
  Age: 35 Year
  Sex: Male

DRUGS (3)
  1. TRUVADA [Suspect]
     Indication: HIV INFECTION
  2. RITONAVIR [Concomitant]
     Indication: HIV INFECTION
  3. FOSAMPRENAVIR [Concomitant]
     Indication: HIV INFECTION

REACTIONS (1)
  - IMMUNE RECONSTITUTION SYNDROME [None]
